FAERS Safety Report 22528047 (Version 2)
Quarter: 2023Q2

REPORT INFORMATION
  Report Type: Spontaneous
  Country: CA (occurrence: None)
  Receive Date: 20230607
  Receipt Date: 20230628
  Transmission Date: 20230722
  Serious: Yes (Hospitalization, Other)
  Sender: FDA-Public Use
  Company Number: CA-PFIZER INC-202300208786

PATIENT
  Age: 71 Year
  Sex: Female

DRUGS (7)
  1. METHOTREXATE [Suspect]
     Active Substance: METHOTREXATE
     Indication: Product used for unknown indication
  2. XELJANZ [Suspect]
     Active Substance: TOFACITINIB CITRATE
     Indication: Rheumatoid arthritis
     Dates: start: 20170118
  3. ALENDRONATE [Concomitant]
     Active Substance: ALENDRONATE SODIUM
  4. ALLOPURINOL [Concomitant]
     Active Substance: ALLOPURINOL
     Dosage: HS
  5. FOLIC ACID [Concomitant]
     Active Substance: FOLIC ACID
     Dosage: 6 TIMES A WEEK
  6. FRAGMIN [Concomitant]
     Active Substance: DALTEPARIN SODIUM
  7. LYRICA [Concomitant]
     Active Substance: PREGABALIN

REACTIONS (7)
  - Pulmonary embolism [Not Recovered/Not Resolved]
  - Portal hypertension [Unknown]
  - Arthritis [Not Recovered/Not Resolved]
  - Neuroendocrine tumour [Unknown]
  - Hypertension [Unknown]
  - Tenosynovitis [Recovered/Resolved]
  - Drug ineffective [Unknown]

NARRATIVE: CASE EVENT DATE: 20230301
